FAERS Safety Report 6769699-9 (Version None)
Quarter: 2010Q2

REPORT INFORMATION
  Report Type: 
  Country: None (occurrence: None)
  Receive Date: 20100615
  Receipt Date: 20100608
  Transmission Date: 20101027
  Serious: Yes (Other)
  Sender: FDA-Public Use
  Company Number: ES-ROCHE-695557

PATIENT
  Sex: Female
  Weight: 51 kg

DRUGS (8)
  1. BONIVA [Suspect]
     Indication: OSTEOPOROSIS
     Route: 048
     Dates: start: 20100405
  2. BELOKEN [Concomitant]
     Route: 048
     Dates: start: 20080905
  3. ADIRO [Concomitant]
     Route: 048
     Dates: start: 20080905
  4. ATORVASTATIN CALCIUM [Concomitant]
     Indication: BLOOD CHOLESTEROL ABNORMAL
     Route: 048
     Dates: start: 20080905
  5. NITRODERM [Concomitant]
     Route: 062
     Dates: start: 20080905
  6. OMEPRAZOLE [Concomitant]
     Indication: PROPHYLAXIS
     Dosage: DOSE: 1 DOSE DAILY
     Route: 048
     Dates: start: 20080905
  7. ENALAPRIL MALEATE [Concomitant]
     Dates: start: 20090401
  8. ACABEL [Concomitant]
     Dates: start: 20100201

REACTIONS (9)
  - ARTHRALGIA [None]
  - CHILLS [None]
  - CONSTIPATION [None]
  - DECREASED APPETITE [None]
  - DISCOMFORT [None]
  - DIZZINESS [None]
  - FLATULENCE [None]
  - INFLUENZA LIKE ILLNESS [None]
  - NECK PAIN [None]
